FAERS Safety Report 9519281 (Version 1)
Quarter: 2013Q3

REPORT INFORMATION
  Report Type: Spontaneous
  Country: US (occurrence: None)
  Receive Date: 20130911
  Receipt Date: 20130911
  Transmission Date: 20140515
  Serious: Yes (Other)
  Sender: FDA-Public Use
  Company Number: None

PATIENT
  Age: 65 Year
  Sex: Female
  Weight: 97.07 kg

DRUGS (12)
  1. RANEXA [Suspect]
     Indication: ANGINA PECTORIS
     Dosage: 500 MG.  BID  PO ?10P
     Route: 048
     Dates: start: 20130827
  2. LANTUS INSULIN [Concomitant]
  3. GLIPIDIZE [Concomitant]
  4. AMITRYTILINE [Concomitant]
  5. ATENOLOL [Concomitant]
  6. BENAZEPRIL [Concomitant]
  7. AMLODIPINE [Concomitant]
  8. HYDROCHLOROTHIAZIDE [Concomitant]
  9. OMEPRAZOLE [Concomitant]
  10. VIT. D [Concomitant]
  11. CALCIUM [Concomitant]
  12. ACETAMINOPHEN [Concomitant]

REACTIONS (2)
  - Tremor [None]
  - Hypoglycaemia [None]
